FAERS Safety Report 11052456 (Version 2)
Quarter: 2015Q2

REPORT INFORMATION
  Report Type: Spontaneous
  Country: US (occurrence: US)
  Receive Date: 20150421
  Receipt Date: 20150525
  Transmission Date: 20150821
  Serious: No
  Sender: FDA-Public Use
  Company Number: US-JNJFOC-20130904288

PATIENT
  Age: 25 Year
  Sex: Male

DRUGS (5)
  1. AMBIEN [Concomitant]
     Active Substance: ZOLPIDEM TARTRATE
     Indication: SLEEP DISORDER
     Route: 065
  2. ATOMOXETINE [Concomitant]
     Active Substance: ATOMOXETINE
     Indication: DEPRESSION
     Route: 065
  3. RISPERDAL CONSTA [Suspect]
     Active Substance: RISPERIDONE
     Indication: SCHIZOPHRENIA
     Route: 030
     Dates: start: 20071221
  4. PROPRANOLOL [Concomitant]
     Active Substance: PROPRANOLOL\PROPRANOLOL HYDROCHLORIDE
     Indication: AGITATION
     Route: 065
  5. ATOMOXETINE [Concomitant]
     Active Substance: ATOMOXETINE
     Indication: DISTURBANCE IN ATTENTION
     Route: 065

REACTIONS (3)
  - Underdose [Recovered/Resolved]
  - Syringe issue [Recovered/Resolved]
  - Accidental exposure to product [Unknown]

NARRATIVE: CASE EVENT DATE: 20130909
